FAERS Safety Report 7936421-X (Version None)
Quarter: 2011Q4

REPORT INFORMATION
  Report Type: 
  Country: None (occurrence: None)
  Receive Date: 20111123
  Receipt Date: 20111116
  Transmission Date: 20120403
  Serious: Yes (Other)
  Sender: FDA-Public Use
  Company Number: JP-PFIZER INC-2011281156

PATIENT
  Age: 78 Year
  Sex: Female
  Weight: 45.2 kg

DRUGS (16)
  1. CARVEDILOL [Concomitant]
     Dosage: UNK
     Route: 048
  2. WARFARIN [Concomitant]
     Dosage: UNK
     Route: 048
  3. RASILEZ [Concomitant]
     Dosage: UNK
     Route: 048
     Dates: end: 20110109
  4. DOBUPUM [Concomitant]
     Dosage: UNK
     Route: 041
     Dates: start: 20110109, end: 20110111
  5. ALDACTONE [Concomitant]
     Dosage: UNK
     Route: 042
     Dates: end: 20110110
  6. HUMULIN R [Concomitant]
     Dosage: UNK
     Route: 042
  7. CEFAMEZIN ^FUJISAWA^ [Concomitant]
     Dosage: UNK
     Route: 042
     Dates: end: 20110108
  8. OMEPRAZOLE [Concomitant]
     Indication: PROPHYLAXIS AGAINST GASTROINTESTINAL ULCER
     Dosage: UNK
     Route: 048
  9. VERAPAMIL HCL [Concomitant]
     Dosage: UNK
     Route: 048
  10. WASSER V GRAN. [Concomitant]
     Indication: VITAMIN SUPPLEMENTATION
     Dosage: UNK
     Route: 041
     Dates: start: 20110109, end: 20110111
  11. LASIX [Concomitant]
     Dosage: UNK
     Route: 042
     Dates: end: 20110110
  12. SILDENAFIL CITRATE [Suspect]
     Indication: RIGHT VENTRICULAR FAILURE
     Dosage: 20 MG, 1X/DAY
     Route: 048
     Dates: start: 20110108, end: 20110109
  13. MAGNESIUM OXIDE [Concomitant]
     Dosage: UNK
     Route: 048
  14. TRICHLORMETHIAZIDE [Concomitant]
     Dosage: UNK
     Route: 048
  15. HANP [Concomitant]
     Dosage: UNK
     Route: 041
     Dates: end: 20110109
  16. FUROSEMIDE [Concomitant]
     Dosage: UNK
     Route: 048

REACTIONS (1)
  - URINE OUTPUT DECREASED [None]
